FAERS Safety Report 7029390-0 (Version None)
Quarter: 2010Q3

REPORT INFORMATION
  Report Type: 
  Country: None (occurrence: None)
  Receive Date: 20100920
  Receipt Date: 20090924
  Transmission Date: 20110219
  Serious: Yes (Hospitalization, Other)
  Sender: FDA-Public Use
  Company Number: 2009274960

PATIENT
  Age: 42 Year
  Sex: Male

DRUGS (5)
  1. DILANTIN-125 [Suspect]
     Indication: CONVULSION
     Dates: start: 20070819, end: 20070924
  2. BACTRIM DS [Concomitant]
  3. VICODIN [Concomitant]
  4. CIPROFLOXACIN [Concomitant]
  5. AUGMENTIN '125' [Concomitant]

REACTIONS (1)
  - STEVENS-JOHNSON SYNDROME [None]
